FAERS Safety Report 9311842 (Version 2)
Quarter: 2013Q2

REPORT INFORMATION
  Report Type: Report from Study
  Country: NZ (occurrence: NZ)
  Receive Date: 20130528
  Receipt Date: 20130617
  Transmission Date: 20140414
  Serious: Yes (Hospitalization)
  Sender: FDA-Public Use
  Company Number: PHHY2013NZ052850

PATIENT
  Age: 42 Year
  Sex: Male

DRUGS (2)
  1. CLOZARIL [Suspect]
     Indication: SCHIZOPHRENIA, PARANOID TYPE
     Dosage: 300 MG, UNK
     Route: 048
     Dates: start: 20120403
  2. CLOZARIL [Suspect]
     Dosage: 75 MG, UNK
     Dates: start: 201301, end: 20130221

REACTIONS (4)
  - Psychotic disorder [Recovered/Resolved]
  - Malaise [Unknown]
  - Phobia [Unknown]
  - Sedation [Unknown]
